FAERS Safety Report 9262591 (Version 1)
Quarter: 2013Q2

REPORT INFORMATION
  Report Type: Spontaneous
  Country: US (occurrence: None)
  Receive Date: 20130426
  Receipt Date: 20130426
  Transmission Date: 20140414
  Serious: Yes (Life-Threatening, Disabling, Other)
  Sender: FDA-Public Use
  Company Number: None

PATIENT
  Age: 81 Year
  Sex: Female

DRUGS (1)
  1. BRILINTA 90 MG TABS [Suspect]
     Indication: STENT PLACEMENT
     Route: 048
     Dates: start: 20130212, end: 20130313

REACTIONS (10)
  - Dyspepsia [None]
  - Pain in extremity [None]
  - Arthralgia [None]
  - Myalgia [None]
  - Arthralgia [None]
  - Wheelchair user [None]
  - Activities of daily living impaired [None]
  - Feeling abnormal [None]
  - Infection in an immunocompromised host [None]
  - Herpes zoster [None]
